FAERS Safety Report 8403441-0 (Version None)
Quarter: 2012Q2

REPORT INFORMATION
  Report Type: 
  Country: None (occurrence: None)
  Receive Date: 20120601
  Receipt Date: 20120524
  Transmission Date: 20120825
  Serious: Yes (Hospitalization)
  Sender: FDA-Public Use
  Company Number: US-JNJFOC-20120520452

PATIENT
  Sex: Female
  Weight: 51.4 kg

DRUGS (6)
  1. IRON [Concomitant]
  2. DIFICID [Concomitant]
  3. PROBIOTICS [Concomitant]
  4. INFLIXIMAB, RECOMBINANT [Suspect]
     Indication: COLITIS ULCERATIVE
     Route: 042
     Dates: start: 20100625, end: 20120323
  5. PREDNISONE TAB [Concomitant]
  6. MULTI-VITAMINS [Concomitant]

REACTIONS (1)
  - COLITIS ULCERATIVE [None]
